FAERS Safety Report 6049389-0 (Version None)
Quarter: 2009Q1

REPORT INFORMATION
  Report Type: 
  Country: None (occurrence: None)
  Receive Date: 20090123
  Receipt Date: 20090121
  Transmission Date: 20090719
  Serious: Yes (Other)
  Sender: FDA-Public Use
  Company Number: CH-GENENTECH-275186

PATIENT
  Sex: Female
  Weight: 95 kg

DRUGS (5)
  1. BEVACIZUMAB [Suspect]
     Indication: BREAST CANCER METASTATIC
     Dosage: 900 MG, Q2W
     Route: 042
     Dates: start: 20071122
  2. BEVACIZUMAB [Suspect]
     Dosage: UNK MG, Q2W
     Route: 042
     Dates: end: 20080327
  3. DOXORUBICIN HCL [Suspect]
     Indication: BREAST CANCER METASTATIC
     Dosage: 35 MG, Q2W
     Dates: start: 20071122, end: 20071219
  4. DOXORUBICIN HCL [Suspect]
     Dosage: 25 MG, Q2W
     Dates: start: 20080109, end: 20080211
  5. DOXORUBICIN HCL [Suspect]
     Dosage: 20 MG, Q2W
     Dates: start: 20080225, end: 20080508

REACTIONS (3)
  - ORAL CAVITY FISTULA [None]
  - OSTEONECROSIS [None]
  - SINUSITIS [None]
